FAERS Safety Report 8587448-9 (Version None)
Quarter: 2012Q3

REPORT INFORMATION
  Report Type: 
  Country: None (occurrence: None)
  Receive Date: 20120810
  Receipt Date: 20120424
  Transmission Date: 20120928
  Serious: Yes (Hospitalization)
  Sender: FDA-Public Use
  Company Number: US-ASTRAZENECA-2011SE58678

PATIENT
  Age: 75 Year
  Sex: Female

DRUGS (5)
  1. DIURETICS [Concomitant]
  2. LISINOPRIL [Suspect]
     Route: 048
  3. TAMOXIFEN CITRATE [Suspect]
     Route: 048
  4. METOCLOPRAMIDE [Concomitant]
     Dosage: AS NEEDED
  5. ARIMIDEX [Suspect]
     Route: 048

REACTIONS (8)
  - MALAISE [None]
  - HEADACHE [None]
  - CHILLS [None]
  - VOMITING [None]
  - CHEST PAIN [None]
  - NAUSEA [None]
  - ASTHENIA [None]
  - DRUG INEFFECTIVE [None]
